FAERS Safety Report 6335879-X (Version None)
Quarter: 2009Q3

REPORT INFORMATION
  Report Type: 
  Country: None (occurrence: None)
  Receive Date: 20090828
  Receipt Date: 20090821
  Transmission Date: 20100115
  Serious: Yes (Other)
  Sender: FDA-Public Use
  Company Number: 2009SP015454

PATIENT
  Age: 68 Year
  Sex: Male
  Weight: 55 kg

DRUGS (4)
  1. PEG-INTRON [Suspect]
     Indication: HEPATITIS C
     Dosage: 80 MCG;QD;SC
     Route: 058
     Dates: start: 20080222, end: 20090119
  2. REBETOL [Suspect]
     Indication: HEPATITIS C
     Dosage: 600 MG;QD;PO
     Route: 048
     Dates: start: 20080222, end: 20090119
  3. URSO         /00465701/ [Concomitant]
  4. NEOPHAGEN        /00782501/ [Concomitant]

REACTIONS (1)
  - LEUKODERMA [None]
